FAERS Safety Report 6781825-4 (Version None)
Quarter: 2010Q2

REPORT INFORMATION
  Report Type: 
  Country: None (occurrence: None)
  Receive Date: 20100618
  Receipt Date: 20100618
  Transmission Date: 20101027
  Serious: Yes (Hospitalization)
  Sender: FDA-Public Use
  Company Number: None

PATIENT
  Age: 60 Year
  Sex: Female
  Weight: 81.6475 kg

DRUGS (1)
  1. TRILIPIX [Suspect]
     Indication: BLOOD TRIGLYCERIDES INCREASED
     Dosage: 1 PER DAY AT BEDTIME
     Dates: start: 20100201, end: 20100604

REACTIONS (4)
  - CHEST DISCOMFORT [None]
  - HEART RATE INCREASED [None]
  - NAUSEA [None]
  - PULMONARY EMBOLISM [None]
